FAERS Safety Report 12806292 (Version 1)
Quarter: 2016Q4

REPORT INFORMATION
  Report Type: Spontaneous
  Country: US (occurrence: US)
  Receive Date: 20161004
  Receipt Date: 20161004
  Transmission Date: 20170207
  Serious: No
  Sender: FDA-Public Use
  Company Number: US-UNICHEM LABORATORIES LIMITED-UCM201508-000683

PATIENT
  Sex: Female
  Weight: 78.93 kg

DRUGS (1)
  1. HYDROCHLOROTHIAZIDE. [Suspect]
     Active Substance: HYDROCHLOROTHIAZIDE
     Route: 048

REACTIONS (5)
  - Abdominal pain upper [Unknown]
  - Drug dispensing error [Unknown]
  - Hypoacusis [Unknown]
  - Feeding disorder [Unknown]
  - Ear infection [Unknown]
